FAERS Safety Report 7433706-0 (Version None)
Quarter: 2011Q2

REPORT INFORMATION
  Report Type: 
  Country: None (occurrence: None)
  Receive Date: 20110422
  Receipt Date: 20110411
  Transmission Date: 20111010
  Serious: Yes (Other)
  Sender: FDA-Public Use
  Company Number: NO-GENENTECH-316815

PATIENT

DRUGS (9)
  1. DOXORUBICIN [Suspect]
     Indication: LYMPHOMA
     Dosage: UNK
     Route: 065
  2. VINCRISTINE [Suspect]
     Indication: LYMPHOMA
     Dosage: UNK
     Route: 065
  3. PREDNISONE [Suspect]
     Indication: LYMPHOMA
     Dosage: UNK
     Route: 065
  4. ETOPOSIDE [Suspect]
     Indication: LYMPHOMA
     Dosage: 100 MG/M2, UNK
     Route: 042
  5. METHOTREXATE [Concomitant]
     Indication: PRODUCT USED FOR UNKNOWN INDICATION
     Dosage: UNK
  6. PEGFILGRASTIM [Concomitant]
     Indication: PRODUCT USED FOR UNKNOWN INDICATION
     Dosage: 6 MG, UNK
     Route: 058
  7. RITUXIMAB [Suspect]
     Indication: LYMPHOMA
     Dosage: UNK
     Route: 065
  8. CYTARABINE [Concomitant]
     Indication: PRODUCT USED FOR UNKNOWN INDICATION
     Dosage: UNK
  9. CYCLOPHOSPHAMIDE [Suspect]
     Indication: LYMPHOMA
     Dosage: UNK
     Route: 065

REACTIONS (2)
  - INFECTION [None]
  - HAEMATOTOXICITY [None]
